FAERS Safety Report 6423720-6 (Version None)
Quarter: 2009Q4

REPORT INFORMATION
  Report Type: 
  Country: None (occurrence: None)
  Receive Date: 20091102
  Receipt Date: 20090201
  Transmission Date: 20100525
  Serious: Yes (Congenital Anomaly)
  Sender: FDA-Public Use
  Company Number: GB-PFIZER INC-2007031134

PATIENT
  Age: 1 Hour
  Sex: Male
  Weight: 3.37 kg

DRUGS (8)
  1. VIRACEPT [Suspect]
     Dosage: 2500 MG, 1X/DAY
     Route: 048
     Dates: start: 20040130, end: 20040601
  2. COMBIVIR [Suspect]
     Indication: HIV INFECTION
     Dosage: 600 MG, 1X/DAY
     Route: 048
     Dates: start: 20040130, end: 20040601
  3. KALETRA [Suspect]
     Indication: HIV INFECTION
     Dosage: 600 MG, 11X/DAY
     Dates: start: 20040601
  4. RETROVIR [Suspect]
     Indication: HIV INFECTION
     Dosage: 600 MG, 1X/DAY
     Route: 048
     Dates: start: 20040601, end: 20040720
  5. VIREAD [Suspect]
     Indication: HIV INFECTION
     Dosage: 300 MG, 1X/DAY
     Route: 048
     Dates: start: 20040601, end: 20040720
  6. CRIXIVAN [Suspect]
     Route: 064
     Dates: start: 20040601, end: 20040720
  7. TRUVADA [Suspect]
     Dosage: 300 MG, UNK
     Route: 048
  8. FOLIC ACID [Concomitant]

REACTIONS (6)
  - ABDOMINAL DISTENSION [None]
  - ABDOMINAL HERNIA [None]
  - CARDIAC MURMUR [None]
  - CONGENITAL ANOMALY [None]
  - CRYPTORCHISM [None]
  - DRUG EXPOSURE DURING PREGNANCY [None]
